FAERS Safety Report 10931977 (Version 2)
Quarter: 2015Q2

REPORT INFORMATION
  Report Type: Spontaneous
  Country: HR (occurrence: HR)
  Receive Date: 20150319
  Receipt Date: 20150504
  Transmission Date: 20150821
  Serious: Yes (Other)
  Sender: FDA-Public Use
  Company Number: HR-ALLERGAN-1504538US

PATIENT
  Age: 58 Year
  Sex: Male

DRUGS (1)
  1. LUMIGAN [Suspect]
     Active Substance: BIMATOPROST
     Dosage: 1 GTT, QD
     Route: 047
     Dates: start: 20150323

REACTIONS (5)
  - Eye haemorrhage [Recovered/Resolved with Sequelae]
  - Eye pain [Recovered/Resolved]
  - Uveitis [Recovered/Resolved with Sequelae]
  - Intraocular pressure increased [Recovered/Resolved]
  - Blindness transient [Recovered/Resolved with Sequelae]

NARRATIVE: CASE EVENT DATE: 20150323
